FAERS Safety Report 6832219-4 (Version None)
Quarter: 2010Q2

REPORT INFORMATION
  Report Type: 
  Country: None (occurrence: None)
  Receive Date: 20100630
  Receipt Date: 20100615
  Transmission Date: 20101027
  Serious: Yes (Other)
  Sender: FDA-Public Use
  Company Number: US-144958

PATIENT
  Sex: Female
  Weight: 94.3482 kg

DRUGS (3)
  1. WINRHO SDF LIQUID [Suspect]
     Indication: IDIOPATHIC THROMBOCYTOPENIC PURPURA
     Dosage: (INTRAVENOUS (NOT OTHERWISE SPECIFIED)), (21.15 ?G/KG INTRAVENOUS (NOT OTHERWISE SPECIFIED))
     Route: 042
     Dates: start: 20100201, end: 20100201
  2. WINRHO SDF LIQUID [Suspect]
     Indication: IDIOPATHIC THROMBOCYTOPENIC PURPURA
     Dosage: (INTRAVENOUS (NOT OTHERWISE SPECIFIED)), (21.15 ?G/KG INTRAVENOUS (NOT OTHERWISE SPECIFIED))
     Route: 042
     Dates: start: 20100301, end: 20100301
  3. WINRHO SDF LIQUID [Suspect]
     Indication: IDIOPATHIC THROMBOCYTOPENIC PURPURA
     Dosage: (INTRAVENOUS (NOT OTHERWISE SPECIFIED)), (21.15 ?G/KG INTRAVENOUS (NOT OTHERWISE SPECIFIED))
     Route: 042
     Dates: start: 20100524, end: 20100524

REACTIONS (3)
  - CHILLS [None]
  - HAEMOLYTIC ANAEMIA [None]
  - URINE ODOUR ABNORMAL [None]
